FAERS Safety Report 5072211-6 (Version None)
Quarter: 2006Q3

REPORT INFORMATION
  Report Type: 
  Country: None (occurrence: None)
  Receive Date: 20060710
  Receipt Date: 20060310
  Transmission Date: 20061208
  Serious: Yes (Other)
  Sender: FDA-Public Use
  Company Number: 2006US000358

PATIENT
  Age: 81 Year
  Sex: Female
  Weight: 74.8 kg

DRUGS (12)
  1. ADENOSCAN [Suspect]
     Indication: SCAN MYOCARDIAL PERFUSION
     Dosage: 63 MG, TOTAL DOSE, IV NOS
     Route: 042
     Dates: start: 20051206, end: 20051206
  2. MYOVIEW (ZINC CHLORIDE, TETROFOSMIN) [Concomitant]
  3. COREG [Concomitant]
  4. LISINOPRIL [Concomitant]
  5. FUROSEMIDE [Concomitant]
  6. POTASSIUM [Concomitant]
  7. WARFARIN SODIUM [Concomitant]
  8. PLAVIX [Concomitant]
  9. TOPROL-XL [Concomitant]
  10. CALCIUM WITH VITAMIN D (ERGOCALCIFEROL, CALCIUM PHOSPHATE, CALCIUM SOD [Concomitant]
  11. ADVICOR (NICOTINIC ACID, LOVASTATIN) [Concomitant]
  12. GABAPENTIN [Concomitant]

REACTIONS (1)
  - BLOOD PRESSURE INCREASED [None]
